FAERS Safety Report 23639676 (Version 2)
Quarter: 2024Q3

REPORT INFORMATION
  Report Type: Report from Study
  Country: ES (occurrence: ES)
  Receive Date: 20240316
  Receipt Date: 20240729
  Transmission Date: 20241016
  Serious: Yes (Hospitalization, Other)
  Sender: TEVA
  Company Number: ES-TEVA-VS-3169143

PATIENT
  Age: 80 Year
  Sex: Female
  Weight: 32 kg

DRUGS (9)
  1. TERIPARATIDE [Suspect]
     Active Substance: TERIPARATIDE
     Indication: Osteoporosis
     Dosage: 20MCG/80MCL
     Route: 065
     Dates: start: 20230216
  2. OMEPRAZOLE [Concomitant]
     Active Substance: OMEPRAZOLE
     Indication: Gastrointestinal disorder prophylaxis
     Dosage: 1-0-0 LONG TIME AGO CONTINUED
     Route: 065
  3. SIMVASTATIN [Concomitant]
     Active Substance: SIMVASTATIN
     Indication: Hypercholesterolaemia
     Dosage: 0-0-1 LONG TIME AGO CONTINUED
     Route: 065
  4. LEVOTHYROXINE [Concomitant]
     Active Substance: LEVOTHYROXINE\LEVOTHYROXINE SODIUM
     Indication: Hypothyroidism
     Dosage: 1-0-0 LONG TIME AGO CONTINUED
     Route: 065
  5. Deprax [Concomitant]
     Indication: Depression
     Dosage: 0-0-1 LONG TIME AGO CONTINUED
     Route: 065
  6. AZITHROMYCIN [Concomitant]
     Active Substance: AZITHROMYCIN
     Indication: Respiratory disorder prophylaxis
     Dosage: 1 EVERY 3 DAYS, SOME TIME AGO CONTINUED
     Route: 065
  7. HEPARIN [Concomitant]
     Active Substance: HEPARIN SODIUM
     Route: 065
     Dates: start: 20240221
  8. PREDNISONE [Concomitant]
     Active Substance: PREDNISONE
     Dosage: 5 MG DOES NOT EXPLAIN WHAT HE IS TAKING IT FOR TAKES 1/24 H LONG TERM CONTINUED
     Route: 065
  9. BISOPROLOL FUMARATE [Concomitant]
     Active Substance: BISOPROLOL FUMARATE
     Indication: Cardiac failure
     Dosage: 1-0-1 TIME AGO CONTINUED
     Route: 065

REACTIONS (3)
  - Diverticulitis [Recovered/Resolved]
  - Intestinal obstruction [Recovered/Resolved]
  - Product availability issue [Unknown]

NARRATIVE: CASE EVENT DATE: 20240101
